FAERS Safety Report 10251911 (Version 1)
Quarter: 2014Q2

REPORT INFORMATION
  Report Type: Spontaneous
  Country: US (occurrence: None)
  Receive Date: 20140619
  Receipt Date: 20140619
  Transmission Date: 20141212
  Serious: Yes (Death)
  Sender: FDA-Public Use
  Company Number: 20140342

PATIENT
  Sex: Male

DRUGS (1)
  1. INJECTAFER (FERRIC CARBOXYMALTOSE INJECTION) (0610-02) 50 MG/ML ? [Suspect]
     Indication: PRODUCT USED FOR UNKNOWN INDICATION

REACTIONS (1)
  - Death [None]
